FAERS Safety Report 5501625-2 (Version None)
Quarter: 2007Q4

REPORT INFORMATION
  Report Type: 
  Country: None (occurrence: None)
  Receive Date: 20071026
  Receipt Date: 20071011
  Transmission Date: 20080405
  Serious: Yes (Other)
  Sender: FDA-Public Use
  Company Number: 162974ISR

PATIENT
  Age: 4 Year
  Sex: Male

DRUGS (4)
  1. CARBOPLATIN [Suspect]
     Indication: RETINOBLASTOMA UNILATERAL
     Dosage: 5040 MG/M2 (168 MG/M2, 3 IN 1 CYCLICAL) PARENTERAL
     Route: 051
  2. ETOPOSIDE [Suspect]
     Indication: RETINOBLASTOMA UNILATERAL
     Dosage: 1080 MG/M2 (360 MG/M2, 3 IN 1 CYCLICAL) PARENTERAL
     Route: 051
  3. CYCLOPHOSPHAMIDE [Suspect]
     Indication: RETINOBLASTOMA UNILATERAL
     Dosage: 9000 MG/M2 (3000 MG/M2, 3 IN 1 CYCLICAL)
  4. VINCRISTINE [Suspect]
     Indication: RETINOBLASTOMA UNILATERAL
     Dosage: 13.5 MG/M2 (4.5 MG/M2, 3 IN 1 CYCLICAL)

REACTIONS (1)
  - ACUTE MYELOID LEUKAEMIA [None]
